FAERS Safety Report 5387331-6 (Version None)
Quarter: 2007Q3

REPORT INFORMATION
  Report Type: 
  Country: None (occurrence: None)
  Receive Date: 20070716
  Receipt Date: 20070710
  Transmission Date: 20080115
  Serious: Yes (Death)
  Sender: FDA-Public Use
  Company Number: PHHO2007JP08158

PATIENT
  Age: 56 Year
  Sex: Male
  Weight: 76 kg

DRUGS (8)
  1. ATELEC [Concomitant]
     Dates: start: 20060621
  2. DIOVAN [Suspect]
     Indication: HYPERTENSION
     Dosage: 80 MG, QD
     Route: 048
     Dates: start: 20061225, end: 20070128
  3. DIOVAN [Suspect]
     Dosage: 80 MG, BID
     Route: 048
     Dates: start: 20070129
  4. DIALYSIS [Concomitant]
  5. PHARLODINE [Concomitant]
  6. STOGAR [Concomitant]
  7. CALCIUM CARBONATE [Concomitant]
  8. OXAROL [Concomitant]

REACTIONS (1)
  - SUBARACHNOID HAEMORRHAGE [None]
